FAERS Safety Report 26126397 (Version 1)
Quarter: 2025Q4

REPORT INFORMATION
  Report Type: Spontaneous
  Country: UA (occurrence: UA)
  Receive Date: 20251205
  Receipt Date: 20251205
  Transmission Date: 20260118
  Serious: Yes (Death)
  Sender: MYLAN
  Company Number: UA-MYLANLABS-2025M1104307

PATIENT
  Age: 49 Year
  Sex: Male

DRUGS (4)
  1. PRETOMANID [Suspect]
     Active Substance: PRETOMANID
     Indication: Tuberculosis
     Dosage: 0.2 GRAM, QD
     Dates: start: 20250814, end: 20251105
  2. BEDAQUILINE [Suspect]
     Active Substance: BEDAQUILINE
     Indication: Tuberculosis
     Dosage: 0.4 GRAM, QW
     Dates: start: 20250814, end: 20250827
  3. BEDAQUILINE [Suspect]
     Active Substance: BEDAQUILINE
     Dosage: 0.2 GRAM, 3XW
     Dates: start: 20250828, end: 20251105
  4. MOXIFLOXACIN [Suspect]
     Active Substance: MOXIFLOXACIN
     Indication: Tuberculosis
     Dosage: 0.4 GRAM, QD
     Dates: start: 20250814, end: 20251105

REACTIONS (1)
  - Death [Fatal]

NARRATIVE: CASE EVENT DATE: 20251105
